FAERS Safety Report 7769947-2 (Version None)
Quarter: 2011Q3

REPORT INFORMATION
  Report Type: 
  Country: None (occurrence: None)
  Receive Date: 20110922
  Receipt Date: 20110912
  Transmission Date: 20111222
  Serious: Yes (Other)
  Sender: FDA-Public Use
  Company Number: US-GLAXOSMITHKLINE-A0945043A

PATIENT
  Age: 80 Year
  Sex: Male

DRUGS (2)
  1. CORTICOSTEROIDS [Concomitant]
     Indication: IDIOPATHIC THROMBOCYTOPENIC PURPURA
  2. PROMACTA [Suspect]
     Indication: IDIOPATHIC THROMBOCYTOPENIC PURPURA
     Dosage: 50MG EVERY 3 DAYS
     Route: 048
     Dates: start: 20090901, end: 20110826

REACTIONS (2)
  - DISEASE PROGRESSION [None]
  - HAEMATOLOGICAL MALIGNANCY [None]
